FAERS Safety Report 8383940-0 (Version None)
Quarter: 2012Q2

REPORT INFORMATION
  Report Type: 
  Country: None (occurrence: None)
  Receive Date: 20120524
  Receipt Date: 20120416
  Transmission Date: 20120825
  Serious: Yes (Other)
  Sender: FDA-Public Use
  Company Number: US-ROCHE-1060380

PATIENT
  Sex: Female

DRUGS (3)
  1. AVASTIN [Suspect]
     Indication: COLORECTAL CANCER
     Dosage: EVERY THIRD WEEK
     Route: 042
  2. XELODA [Suspect]
     Dosage: CONTINUOUSLY WITHOUT BREAK
  3. XELODA [Suspect]
     Indication: COLORECTAL CANCER
     Dosage: 2 WEEKS ON/ 1 WEEK OFF

REACTIONS (3)
  - CARCINOEMBRYONIC ANTIGEN INCREASED [None]
  - DRUG TOLERANCE [None]
  - IMPAIRED HEALING [None]
